FAERS Safety Report 9511979 (Version 1)
Quarter: 2013Q3

REPORT INFORMATION
  Report Type: Spontaneous
  Country: FR (occurrence: None)
  Receive Date: 20130906
  Receipt Date: 20130906
  Transmission Date: 20140515
  Serious: Yes (Hospitalization)
  Sender: FDA-Public Use
  Company Number: DSM-2013-00802

PATIENT
  Age: 52 Year
  Sex: Male

DRUGS (3)
  1. OLMETEC (OLMESARTAN MEDOXOMIL) [Suspect]
     Indication: HYPERTENSION
     Route: 048
  2. XATRAL [Suspect]
     Indication: BENIGN PROSTATIC HYPERPLASIA
     Route: 048
     Dates: start: 20130313, end: 20130316
  3. CIFLOX [Suspect]
     Indication: PROSTATITIS
     Dosage: 03/13/2013 - END OF MAR-2013, PO
     Route: 048
     Dates: start: 20130313

REACTIONS (3)
  - Orthostatic hypotension [None]
  - Malaise [None]
  - Loss of consciousness [None]
